FAERS Safety Report 4993389-6 (Version None)
Quarter: 2006Q2

REPORT INFORMATION
  Report Type: 
  Country: None (occurrence: None)
  Receive Date: 20060505
  Receipt Date: 20060426
  Transmission Date: 20061013
  Serious: Yes (Hospitalization)
  Sender: FDA-Public Use
  Company Number: FR-AVENTIS-200611570FR

PATIENT
  Age: 47 Year
  Sex: Male

DRUGS (5)
  1. PIRILENE [Suspect]
     Indication: PULMONARY TUBERCULOSIS
     Route: 048
     Dates: start: 20051209, end: 20060120
  2. RIFADIN [Suspect]
     Indication: PULMONARY TUBERCULOSIS
     Dates: start: 20051209, end: 20060120
  3. MYAMBUTOL [Suspect]
     Indication: PULMONARY TUBERCULOSIS
     Dates: start: 20051209, end: 20051219
  4. ALLOPURINOL [Suspect]
     Indication: HYPERURICAEMIA
     Route: 048
     Dates: start: 20051219, end: 20060118
  5. RIMIFON [Suspect]
     Indication: PULMONARY TUBERCULOSIS
     Dates: start: 20051209, end: 20060120

REACTIONS (12)
  - CHOLESTASIS [None]
  - CYTOLYTIC HEPATITIS [None]
  - DRUG RASH WITH EOSINOPHILIA AND SYSTEMIC SYMPTOMS [None]
  - EOSINOPHILIA [None]
  - EYE DISORDER [None]
  - HEPATITIS FULMINANT [None]
  - HYPERURICAEMIA [None]
  - LIVER DISORDER [None]
  - LYMPHADENOPATHY [None]
  - PROTHROMBIN TIME PROLONGED [None]
  - PYREXIA [None]
  - RASH [None]
